FAERS Safety Report 8171249-X (Version None)
Quarter: 2012Q1

REPORT INFORMATION
  Report Type: 
  Country: None (occurrence: None)
  Receive Date: 20120228
  Receipt Date: 20120222
  Transmission Date: 20120608
  Serious: Yes (Hospitalization, Other)
  Sender: FDA-Public Use
  Company Number: IN-PFIZER INC-2012015058

PATIENT
  Age: 52 Year
  Sex: Male

DRUGS (2)
  1. SUTENT [Suspect]
     Indication: METASTATIC RENAL CELL CARCINOMA
     Dosage: 50 MG, 1X/DAY
     Route: 048
     Dates: start: 20111110
  2. SUTENT [Suspect]
     Dosage: 25 MG, 1X/DAY
     Route: 048

REACTIONS (10)
  - APHAGIA [None]
  - MOUTH ULCERATION [None]
  - NAUSEA [None]
  - GASTRITIS [None]
  - FURUNCLE [None]
  - OESOPHAGITIS [None]
  - SKIN DISCOLOURATION [None]
  - DYSGEUSIA [None]
  - DYSPEPSIA [None]
  - HICCUPS [None]
